FAERS Safety Report 14596746 (Version 1)
Quarter: 2018Q1

REPORT INFORMATION
  Report Type: Spontaneous
  Country: ES (occurrence: ES)
  Receive Date: 20180304
  Receipt Date: 20180304
  Transmission Date: 20180509
  Serious: Yes (Other)
  Sender: FDA-Public Use
  Company Number: ES-TEVA-2018-ES-864192

PATIENT
  Age: 43 Year
  Sex: Male

DRUGS (4)
  1. ACTIQ [Suspect]
     Active Substance: FENTANYL CITRATE
     Dosage: IN THE LAST 11 MONTHS TAKE AN AVERAGE OF ACTIQ 200 MG OF 7 TABLETS / DAY
     Dates: start: 20131201
  2. ACTIQ [Suspect]
     Active Substance: FENTANYL CITRATE
     Dosage: EN LOS ULTIMOS 11 MESES TOMA UNA MEDIA DE 19 COMPRIMIDOS/DIA (578 COMPRIMIDOS/MES)
     Dates: start: 20131201
  3. DIAZEPAN PRODES 5 MG COMPRIMIDOS,40 COMPRIMIDOS [Concomitant]
     Dates: start: 201710
  4. PARACETAMOL 1.000 MG 40 COMPRIMIDOS [Concomitant]

REACTIONS (2)
  - Dependence [Not Recovered/Not Resolved]
  - Off label use [Not Recovered/Not Resolved]

NARRATIVE: CASE EVENT DATE: 20141201
